FAERS Safety Report 11387166 (Version 1)
Quarter: 2015Q3

REPORT INFORMATION
  Report Type: Spontaneous
  Country: US (occurrence: None)
  Receive Date: 20150814
  Receipt Date: 20150814
  Transmission Date: 20151125
  Serious: Yes (Hospitalization)
  Sender: FDA-Public Use
  Company Number: None

PATIENT
  Age: 89 Year
  Sex: Female
  Weight: 90.7 kg

DRUGS (20)
  1. PULMICORT TURBUHALER [Concomitant]
     Active Substance: BUDESONIDE
  2. ALBUTEROL. [Concomitant]
     Active Substance: ALBUTEROL
  3. PEPCID [Concomitant]
     Active Substance: FAMOTIDINE
  4. CEPHULAC [Concomitant]
     Active Substance: LACTULOSE
  5. APAP [Concomitant]
     Active Substance: ACETAMINOPHEN
  6. ALPHAGAN P [Concomitant]
     Active Substance: BRIMONIDINE TARTRATE
  7. ZEMPKER [Concomitant]
  8. LEVEMIR [Suspect]
     Active Substance: INSULIN DETEMIR
     Indication: DIABETES MELLITUS
     Dosage: 85 UNITS QAM SQ?15 UNITS QAM SQ?CHRONIC
  9. AZOPT [Concomitant]
     Active Substance: BRINZOLAMIDE
  10. APRESOLINE HYDROCHLORIDE [Concomitant]
     Active Substance: HYDRALAZINE HYDROCHLORIDE
  11. KEPPRA [Concomitant]
     Active Substance: LEVETIRACETAM
  12. HUMALOG [Suspect]
     Active Substance: INSULIN LISPRO
     Indication: DIABETES MELLITUS
     Dosage: TID AC SQ?CHRONIC
  13. ZOFRAN [Concomitant]
     Active Substance: ONDANSETRON HYDROCHLORIDE
  14. ZYLOPRIM [Concomitant]
     Active Substance: ALLOPURINOL
  15. ZOLOFT [Concomitant]
     Active Substance: SERTRALINE HYDROCHLORIDE
  16. ZOCOR [Concomitant]
     Active Substance: SIMVASTATIN
  17. XANAX [Concomitant]
     Active Substance: ALPRAZOLAM
  18. ECOTRIN [Concomitant]
     Active Substance: ASPIRIN
  19. NAMENDA [Concomitant]
     Active Substance: MEMANTINE HYDROCHLORIDE
  20. DESYREL [Concomitant]
     Active Substance: TRAZODONE HYDROCHLORIDE

REACTIONS (3)
  - Encephalopathy [None]
  - Urinary tract infection [None]
  - Hypoglycaemia [None]

NARRATIVE: CASE EVENT DATE: 20150206
